FAERS Safety Report 24201044 (Version 1)
Quarter: 2024Q3

REPORT INFORMATION
  Report Type: Spontaneous
  Country: US (occurrence: US)
  Receive Date: 20240812
  Receipt Date: 20240812
  Transmission Date: 20241016
  Serious: No
  Sender: MYLAN
  Company Number: US-MYLANLABS-2024M1073404

PATIENT
  Age: 47 Year
  Sex: Female
  Weight: 74.83 kg

DRUGS (1)
  1. ESTRADIOL TRANSDERMAL SYSTEM [Suspect]
     Active Substance: ESTRADIOL
     Indication: Product used for unknown indication
     Dosage: 0.025 MILLIGRAM, QD (PER DAY, WEEKLY)
     Route: 062
     Dates: start: 20240712

REACTIONS (2)
  - Drug dose omission by device [Unknown]
  - Product adhesion issue [Unknown]

NARRATIVE: CASE EVENT DATE: 20240701
